FAERS Safety Report 16047661 (Version 2)
Quarter: 2019Q2

REPORT INFORMATION
  Report Type: Spontaneous
  Country: JP (occurrence: JP)
  Receive Date: 20190307
  Receipt Date: 20190619
  Transmission Date: 20190711
  Serious: Yes (Life-Threatening, Other)
  Sender: FDA-Public Use
  Company Number: JP-PFIZER INC-2019097222

PATIENT
  Age: 84 Year
  Sex: Female
  Weight: 46 kg

DRUGS (9)
  1. EMEND [Concomitant]
     Active Substance: APREPITANT
     Dosage: UNK UNK, DAILY
  2. RESTAMIN [DIPHENHYDRAMINE] [Concomitant]
     Dosage: 50 MG (5 TABLETS), DAILY
  3. PACLITAXEL HOSPIRA [Suspect]
     Active Substance: PACLITAXEL
     Indication: ADENOCARCINOMA
     Dosage: 108.64 MG, DAILY
     Route: 041
     Dates: start: 20180719, end: 20180719
  4. LOXOPROFEN SODIUM [Concomitant]
     Active Substance: LOXOPROFEN SODIUM
     Dosage: UNK
  5. RANITIDINE. [Concomitant]
     Active Substance: RANITIDINE
     Dosage: 50 MG, DAILY
  6. ISOTONIC SODIUM CHLORIDE SOLUTION [Concomitant]
     Active Substance: SODIUM CHLORIDE
     Dosage: 100 ML, UNK
  7. ALOXI [Concomitant]
     Active Substance: PALONOSETRON HYDROCHLORIDE
     Dosage: 0.75 MG, DAILY
     Dates: start: 20180719, end: 20180719
  8. TEPRENONE [Concomitant]
     Active Substance: TEPRENONE
     Dosage: UNK
     Dates: start: 20180629
  9. DEXART [Concomitant]
     Active Substance: DEXAMETHASONE SODIUM PHOSPHATE
     Dosage: 6.6 MG, DAILY

REACTIONS (1)
  - Anaphylactic shock [Recovering/Resolving]

NARRATIVE: CASE EVENT DATE: 20180719
